FAERS Safety Report 4764418-X (Version None)
Quarter: 2005Q3

REPORT INFORMATION
  Report Type: 
  Country: None (occurrence: None)
  Receive Date: 20050906
  Receipt Date: 20050812
  Transmission Date: 20060218
  Serious: Yes (Other)
  Sender: FDA-Public Use
  Company Number: 6016680

PATIENT
  Age: 50 Year
  Sex: Female

DRUGS (1)
  1. BISOPROLOL FUMARATE [Suspect]
     Dosage: ORAL
     Route: 048

REACTIONS (5)
  - ABDOMINAL MASS [None]
  - AORTITIS [None]
  - INFLAMMATION [None]
  - INTERMITTENT CLAUDICATION [None]
  - RETROPERITONEAL FIBROSIS [None]
